FAERS Safety Report 9396943 (Version 1)
Quarter: 2013Q3

REPORT INFORMATION
  Report Type: Spontaneous
  Country: US (occurrence: US)
  Receive Date: 20130712
  Receipt Date: 20130712
  Transmission Date: 20140515
  Serious: No
  Sender: FDA-Public Use
  Company Number: US-BIOGENIDEC-2013BI062769

PATIENT
  Age: 54 Year
  Sex: Male

DRUGS (2)
  1. TYSABRI [Suspect]
     Indication: MULTIPLE SCLEROSIS
     Route: 042
     Dates: start: 20110408, end: 20111229
  2. TYSABRI [Suspect]
     Indication: MULTIPLE SCLEROSIS
     Route: 042
     Dates: start: 20130328

REACTIONS (5)
  - Erythema [Recovered/Resolved]
  - Swelling face [Recovered/Resolved]
  - Abasia [Recovered/Resolved]
  - Urticaria [Recovered/Resolved]
  - Asthenia [Recovered/Resolved]
